FAERS Safety Report 9750177 (Version 1)
Quarter: 2013Q4

REPORT INFORMATION
  Report Type: Spontaneous
  Country: DE (occurrence: DE)
  Receive Date: 20131212
  Receipt Date: 20131212
  Transmission Date: 20140711
  Serious: Yes (Hospitalization)
  Sender: FDA-Public Use
  Company Number: GXKR2013DE003791

PATIENT
  Age: 55 Year
  Sex: Female

DRUGS (1)
  1. CIPRO 1A PHARMA [Suspect]
     Indication: ABDOMINAL INFECTION
     Dosage: 250 MG, QD
     Route: 048
     Dates: start: 20131112, end: 20131113

REACTIONS (7)
  - Osteomyelitis [Recovering/Resolving]
  - Tendonitis [Recovering/Resolving]
  - Walking disability [Recovering/Resolving]
  - Erythema [Recovering/Resolving]
  - Local swelling [Recovering/Resolving]
  - Hyperthermia [Recovering/Resolving]
  - Pain in extremity [Recovering/Resolving]
